FAERS Safety Report 9417038 (Version 10)
Quarter: 2014Q2

REPORT INFORMATION
  Report Type: Spontaneous
  Country: US (occurrence: None)
  Receive Date: 20130722
  Receipt Date: 20140603
  Transmission Date: 20141212
  Serious: Yes (Hospitalization, Other)
  Sender: FDA-Public Use
  Company Number: AEGR000076

PATIENT
  Age: 52 Year
  Sex: Female
  Weight: 60.8 kg

DRUGS (24)
  1. JUXTAPID [Suspect]
     Indication: TYPE IIA HYPERLIPIDAEMIA
     Route: 048
     Dates: start: 201304, end: 201307
  2. FENTANYL [Suspect]
     Indication: CATHETERISATION CARDIAC
     Dates: start: 20130703, end: 20130703
  3. FENTANYL [Suspect]
     Indication: PERCUTANEOUS CORONARY INTERVENTION
     Dates: start: 20130703, end: 20130703
  4. LIDOCAINE [Suspect]
     Indication: CATHETERISATION CARDIAC
     Dates: start: 20130703, end: 20130703
  5. LIDOCAINE [Suspect]
     Indication: PERCUTANEOUS CORONARY INTERVENTION
     Dates: start: 20130703, end: 20130703
  6. VERSED [Suspect]
     Indication: CATHETERISATION CARDIAC
     Dates: start: 20130703, end: 20130703
  7. VERSED [Suspect]
     Indication: PERCUTANEOUS CORONARY INTERVENTION
     Dates: start: 20130703, end: 20130703
  8. METHOCARBAMOL [Concomitant]
  9. NIASPAN [Concomitant]
  10. CENTRUM [Concomitant]
  11. GABAPENTIN (GABAPENTIN) [Concomitant]
  12. FLUOXETINE (FLUOXETINE) [Concomitant]
  13. VITAMIN E [Concomitant]
  14. ATORVASTATIN (ATORVASTATIN) [Concomitant]
  15. PLAVIX [Concomitant]
  16. ZETIA (EZETIMIBE) [Concomitant]
  17. XANAX (ALPRAZOLAM) [Concomitant]
  18. TRAMADOL [Concomitant]
  19. HYDROCODONE BITARTRATE/ACETAMINOPHEN [Concomitant]
  20. METOPROLOL [Concomitant]
  21. CALCIUM [Concomitant]
  22. OMEGA 3 [Concomitant]
  23. LIPITOR (ATORVASTATIN CALCIUM) [Concomitant]
  24. ROBAXIN [Concomitant]

REACTIONS (25)
  - Coronary arterial stent insertion [None]
  - Cardiac stress test abnormal [None]
  - Oral pain [None]
  - Odynophagia [None]
  - Myocardial ischaemia [None]
  - Pain in jaw [None]
  - Weight decreased [None]
  - Dyspepsia [None]
  - Temperature intolerance [None]
  - Oral pain [None]
  - Epistaxis [None]
  - Diarrhoea [None]
  - Vomiting [None]
  - Malaise [None]
  - Myocardial ischaemia [None]
  - Myocardial infarction [None]
  - Pain in jaw [None]
  - Oropharyngeal pain [None]
  - Toothache [None]
  - Odynophagia [None]
  - Epistaxis [None]
  - Malaise [None]
  - Alopecia [None]
  - Weight decreased [None]
  - Dyspepsia [None]
